FAERS Safety Report 10012478 (Version 1)
Quarter: 2014Q1

REPORT INFORMATION
  Report Type: Spontaneous
  Country: DE (occurrence: DE)
  Receive Date: 20140314
  Receipt Date: 20140314
  Transmission Date: 20141002
  Serious: Yes (Other)
  Sender: FDA-Public Use
  Company Number: DE-WATSON-2014-04403

PATIENT
  Age: 32 Year
  Sex: Female
  Weight: 128 kg

DRUGS (5)
  1. RAMIPRIL (UNKNOWN) [Suspect]
     Indication: HYPERTENSION
     Dosage: 5 MG, DAILY
     Route: 048
     Dates: start: 20121010, end: 20121015
  2. EDARBI [Suspect]
     Indication: HYPERTENSION
     Dosage: 20 MG, DAILY
     Route: 048
     Dates: start: 20120607, end: 20121119
  3. METHYLDOPA [Concomitant]
     Indication: HYPERTENSION
     Dosage: 250 MG, TID
     Route: 048
     Dates: start: 20121121, end: 20130311
  4. INFLUSPLIT SSW [Concomitant]
     Indication: IMMUNISATION
     Dosage: UNK
     Route: 030
     Dates: start: 20121019, end: 20121019
  5. FOLIC ACID [Concomitant]
     Indication: PROPHYLAXIS OF NEURAL TUBE DEFECT
     Dosage: 0.8 MG, DAILY
     Route: 048
     Dates: start: 20120607, end: 20130311

REACTIONS (4)
  - Oligohydramnios [Recovered/Resolved]
  - Foetal exposure during pregnancy [Unknown]
  - Gestational diabetes [Unknown]
  - Premature rupture of membranes [Recovered/Resolved]
